FAERS Safety Report 4424796-8 (Version None)
Quarter: 2004Q3

REPORT INFORMATION
  Report Type: 
  Country: None (occurrence: None)
  Receive Date: 20040809
  Receipt Date: 20040728
  Transmission Date: 20050211
  Serious: Yes (Hospitalization, Other)
  Sender: FDA-Public Use
  Company Number: DE-JNJFOC-20040707903

PATIENT
  Age: 67 Year
  Sex: Male

DRUGS (14)
  1. LEVOFLOXACIN [Suspect]
     Indication: PNEUMONIA
     Dosage: INTRAVENOUS
     Route: 042
     Dates: start: 20030619, end: 20030622
  2. LEVOFLOXACIN [Suspect]
     Indication: PNEUMONIA
     Dosage: ORAL
     Route: 048
     Dates: start: 20030623, end: 20030628
  3. GUAIFENESIN (GUAIFENESIN) [Concomitant]
  4. ACETAMINOPHEN [Concomitant]
  5. ASPIRIN [Concomitant]
  6. FLUNISOLIDE (FLUNISOLIDE) [Concomitant]
  7. HEPARIN [Concomitant]
  8. KETOROLAC (KETOROLAC) [Concomitant]
  9. RABEPRAZOLE SODIUM [Concomitant]
  10. NAPROXEN [Concomitant]
  11. PREDNISONE [Concomitant]
  12. ALBUTEROL [Concomitant]
  13. HYDROCHLOROTHIAZIDE [Concomitant]
  14. IPRATROPIUM BROMIDE [Concomitant]

REACTIONS (15)
  - ATRIAL FLUTTER [None]
  - CHRONIC OBSTRUCTIVE AIRWAYS DISEASE EXACERBATED [None]
  - DERMATITIS BULLOUS [None]
  - DIASTOLIC DYSFUNCTION [None]
  - DILATATION ATRIAL [None]
  - DILATATION VENTRICULAR [None]
  - DIZZINESS [None]
  - HYPOTENSION [None]
  - INFECTION [None]
  - LUNG ABSCESS [None]
  - MITRAL VALVE INCOMPETENCE [None]
  - PNEUMONIA [None]
  - PULMONARY HYPERTENSION [None]
  - RIGHT VENTRICULAR SYSTOLIC PRESSURE INCREASED [None]
  - TRICUSPID VALVE INCOMPETENCE [None]
